FAERS Safety Report 13412213 (Version 2)
Quarter: 2017Q4

REPORT INFORMATION
  Report Type: Spontaneous
  Country: US (occurrence: US)
  Receive Date: 20170406
  Receipt Date: 20171123
  Transmission Date: 20180320
  Serious: No
  Sender: FDA-Public Use
  Company Number: US-JNJFOC-20170314731

PATIENT
  Sex: Male

DRUGS (5)
  1. RISPERDAL [Suspect]
     Active Substance: RISPERIDONE
     Indication: ATTENTION DEFICIT/HYPERACTIVITY DISORDER
     Dosage: VARYING DOSES OF 0.5 MG, 1 MG, 2 MG
     Route: 048
     Dates: start: 19991008, end: 20050430
  2. RISPERDAL [Suspect]
     Active Substance: RISPERIDONE
     Indication: PERSONALITY DISORDER
     Dosage: VARYING DOSES OF 0.5 MG, 1 MG, 2 MG
     Route: 048
     Dates: start: 19991008, end: 20050430
  3. RISPERDAL [Suspect]
     Active Substance: RISPERIDONE
     Indication: SUBSTANCE ABUSE
     Dosage: VARYING DOSES OF 0.5 MG, 1 MG, 2 MG
     Route: 048
     Dates: start: 19991008, end: 20050430
  4. RISPERDAL [Suspect]
     Active Substance: RISPERIDONE
     Indication: CONDUCT DISORDER
     Dosage: VARYING DOSES OF 0.5 MG, 1 MG, 2 MG
     Route: 048
     Dates: start: 19991008, end: 20050430
  5. RISPERDAL [Suspect]
     Active Substance: RISPERIDONE
     Indication: BIPOLAR DISORDER
     Dosage: VARYING DOSES OF 0.5 MG, 1 MG, 2 MG
     Route: 048
     Dates: start: 19991008, end: 20050430

REACTIONS (3)
  - Emotional disorder [Unknown]
  - Weight increased [Unknown]
  - Gynaecomastia [Unknown]
